FAERS Safety Report 19946454 (Version 1)
Quarter: 2021Q4

REPORT INFORMATION
  Report Type: Spontaneous
  Country: US (occurrence: US)
  Receive Date: 20211012
  Receipt Date: 20211012
  Transmission Date: 20220303
  Serious: Yes (Hospitalization, Other)
  Sender: FDA-Public Use
  Company Number: US-FRESENIUS KABI-FK202110938

PATIENT
  Age: 42 Year
  Sex: Female

DRUGS (6)
  1. CYTARABINE [Suspect]
     Active Substance: CYTARABINE
     Indication: Acute monocytic leukaemia
     Dosage: INDUCTION CHEMOTHERAPY
     Route: 065
  2. CYTARABINE [Suspect]
     Active Substance: CYTARABINE
     Indication: Tyrosine kinase mutation
  3. DAUNORUBICIN [Suspect]
     Active Substance: DAUNORUBICIN
     Indication: Acute monocytic leukaemia
     Dosage: INDUCTION CHEMOTHERAPY
     Route: 065
  4. DAUNORUBICIN [Suspect]
     Active Substance: DAUNORUBICIN
     Indication: Tyrosine kinase mutation
  5. MIDOSTAURIN [Suspect]
     Active Substance: MIDOSTAURIN
     Indication: Acute monocytic leukaemia
     Dosage: INDUCTION CHEMOTHERAPY
     Route: 065
  6. MIDOSTAURIN [Suspect]
     Active Substance: MIDOSTAURIN
     Indication: Tyrosine kinase mutation

REACTIONS (1)
  - Hidradenitis [Recovering/Resolving]
